FAERS Safety Report 12494323 (Version 1)
Quarter: 2016Q2

REPORT INFORMATION
  Report Type: Report from Study
  Country: US (occurrence: US)
  Receive Date: 20160623
  Receipt Date: 20160623
  Transmission Date: 20160815
  Serious: Yes (Hospitalization, Other)
  Sender: FDA-Public Use
  Company Number: US-GILEAD-2016-0212597

PATIENT
  Age: 76 Year
  Sex: Male

DRUGS (8)
  1. IDELALISIB [Suspect]
     Active Substance: IDELALISIB
     Indication: CHRONIC LYMPHOCYTIC LEUKAEMIA
     Dosage: 150 MG, BID
     Route: 048
     Dates: start: 20160330, end: 20160422
  2. IDELALISIB [Suspect]
     Active Substance: IDELALISIB
     Dosage: 100 MG, UNK
     Route: 048
     Dates: start: 20160509
  3. CRESTOR [Concomitant]
     Active Substance: ROSUVASTATIN CALCIUM
  4. RITUXAN [Concomitant]
     Active Substance: RITUXIMAB
  5. CARVEDILOL. [Concomitant]
     Active Substance: CARVEDILOL
  6. ELIQUIS [Concomitant]
     Active Substance: APIXABAN
  7. TERAZOSIN [Concomitant]
     Active Substance: TERAZOSIN\TERAZOSIN HYDROCHLORIDE
  8. FUROSEMIDE. [Concomitant]
     Active Substance: FUROSEMIDE

REACTIONS (8)
  - Gingival bleeding [Unknown]
  - Rectal haemorrhage [Unknown]
  - Acne [Unknown]
  - Fluid retention [Unknown]
  - Pneumonia [Unknown]
  - Dyspnoea [Unknown]
  - Productive cough [Unknown]
  - Rash [Unknown]
